FAERS Safety Report 5317943-7 (Version None)
Quarter: 2007Q2

REPORT INFORMATION
  Report Type: 
  Country: None (occurrence: None)
  Receive Date: 20070504
  Receipt Date: 20070504
  Transmission Date: 20071010
  Serious: Yes (Hospitalization)
  Sender: FDA-Public Use
  Company Number: None

PATIENT
  Age: 75 Year
  Sex: Male
  Weight: 75.7507 kg

DRUGS (1)
  1. SPIRONOLACTONE [Suspect]
     Indication: HYPERALDOSTERONISM
     Dosage: 150-200 MG BID PO
     Route: 048
     Dates: start: 20070305, end: 20070319

REACTIONS (1)
  - BLOOD POTASSIUM INCREASED [None]
